FAERS Safety Report 7032069-2 (Version None)
Quarter: 2010Q4

REPORT INFORMATION
  Report Type: 
  Country: None (occurrence: None)
  Receive Date: 20101007
  Receipt Date: 20100928
  Transmission Date: 20110411
  Serious: Yes (Life-Threatening)
  Sender: FDA-Public Use
  Company Number: FR-ELI_LILLY_AND_COMPANY-FR201007006231

PATIENT
  Age: 52 Year
  Sex: Male
  Weight: 60 kg

DRUGS (4)
  1. EFFIENT [Suspect]
     Indication: MYOCARDIAL INFARCTION
     Dosage: 60 MG, LOADING DOSE
     Route: 048
     Dates: start: 20100723, end: 20100725
  2. EFFIENT [Suspect]
     Dosage: 10 MG, UNKNOWN
     Route: 048
  3. NORADRENALINE [Concomitant]
  4. HEPARIN [Concomitant]

REACTIONS (1)
  - CARDIAC VALVE RUPTURE [None]
